FAERS Safety Report 4883986-0 (Version None)
Quarter: 2006Q1

REPORT INFORMATION
  Report Type: 
  Country: None (occurrence: None)
  Receive Date: 20060112
  Receipt Date: 20060103
  Transmission Date: 20060701
  Serious: Yes (Other)
  Sender: FDA-Public Use
  Company Number: 200510293BCA

PATIENT
  Age: 58 Year
  Sex: Male

DRUGS (5)
  1. GAMUNEX [Suspect]
     Indication: ARTHRITIS BACTERIAL
     Dosage: 40 G, DAILY, INTRAVENOUS
     Route: 042
     Dates: start: 20050523, end: 20050526
  2. PENICILLIN [Concomitant]
  3. TYLENOL (CAPLET) [Concomitant]
  4. DILAUDID [Concomitant]
  5. CLINDAMYCIN [Concomitant]

REACTIONS (4)
  - BLOOD PRESSURE DECREASED [None]
  - HALLUCINATION, VISUAL [None]
  - INFUSION RELATED REACTION [None]
  - VOMITING [None]
